FAERS Safety Report 11663778 (Version 2)
Quarter: 2015Q4

REPORT INFORMATION
  Report Type: Report from Study
  Country: US (occurrence: US)
  Receive Date: 20151027
  Receipt Date: 20151029
  Transmission Date: 20160304
  Serious: No
  Sender: FDA-Public Use
  Company Number: PHEH2014US015626

PATIENT
  Sex: Male
  Weight: 36.2 kg

DRUGS (3)
  1. AMOXICILLIN. [Concomitant]
     Active Substance: AMOXICILLIN
     Indication: SICKLE CELL ANAEMIA
     Dosage: 250 MG, BID
     Route: 048
  2. EXJADE [Suspect]
     Active Substance: DEFERASIROX
     Indication: SICKLE CELL ANAEMIA
     Dosage: 1000 MG, M,W.F/500 MG T,TH,S,S
     Route: 048
     Dates: start: 20140529
  3. FOLIC ACID. [Concomitant]
     Active Substance: FOLIC ACID
     Indication: SICKLE CELL ANAEMIA
     Dosage: 1 MG, UNK
     Route: 048

REACTIONS (3)
  - Pyrexia [Unknown]
  - Gait disturbance [Recovering/Resolving]
  - Pain in extremity [Unknown]
